FAERS Safety Report 11692743 (Version 1)
Quarter: 2015Q4

REPORT INFORMATION
  Report Type: Spontaneous
  Country: US (occurrence: None)
  Receive Date: 20151102
  Receipt Date: 20151102
  Transmission Date: 20160304
  Serious: Yes (Hospitalization)
  Sender: FDA-Public Use
  Company Number: None

PATIENT
  Age: 74 Year
  Sex: Male
  Weight: 113.4 kg

DRUGS (16)
  1. AVODART [Concomitant]
     Active Substance: DUTASTERIDE
  2. CARDURA [Concomitant]
     Active Substance: DOXAZOSIN MESYLATE
  3. FUROSEMIDE. [Concomitant]
     Active Substance: FUROSEMIDE
  4. LOVENOX [Concomitant]
     Active Substance: ENOXAPARIN SODIUM
  5. METOPROLOL SUCCINATE. [Concomitant]
     Active Substance: METOPROLOL SUCCINATE
  6. TAMSULOSIN [Concomitant]
     Active Substance: TAMSULOSIN
  7. HYDROCODONE/APAP 7.5/325 [Concomitant]
  8. LEVOTHYROXINE. [Concomitant]
     Active Substance: LEVOTHYROXINE
  9. SAW PALMETTO [Concomitant]
     Active Substance: SAW PALMETTO
  10. ZYRTEC [Concomitant]
     Active Substance: CETIRIZINE HYDROCHLORIDE
  11. VEMURAFENIB [Suspect]
     Active Substance: VEMURAFENIB
     Indication: THYROID CANCER
     Route: 048
     Dates: start: 20151008, end: 20151015
  12. ALEVE [Concomitant]
     Active Substance: NAPROXEN SODIUM
  13. TYLENOL [Concomitant]
     Active Substance: ACETAMINOPHEN
  14. IBUPROFEN. [Concomitant]
     Active Substance: IBUPROFEN
  15. LEVAQUIN [Concomitant]
     Active Substance: LEVOFLOXACIN
  16. METOLAZONE. [Concomitant]
     Active Substance: METOLAZONE

REACTIONS (5)
  - Pyrexia [None]
  - Cardiac failure congestive [None]
  - Atrial fibrillation [None]
  - Renal failure [None]
  - Generalised oedema [None]

NARRATIVE: CASE EVENT DATE: 20151024
